FAERS Safety Report 6984105 (Version 3)
Quarter: 2014Q1

REPORT INFORMATION
  Report Type: Spontaneous
  Country: US (occurrence: US)
  Receive Date: 20090501
  Receipt Date: 20140320
  Transmission Date: 20141002
  Serious: Yes (Death, Hospitalization, Other)
  Sender: FDA-Public Use
  Company Number: US-ALEXION-A200700064

PATIENT
  Age: 59 Year
  Sex: Female

DRUGS (18)
  1. SOLIRIS [Suspect]
     Indication: PAROXYSMAL NOCTURNAL HAEMOGLOBINURIA
     Dosage: 600 MG, SINGLE
     Route: 042
     Dates: start: 20070906, end: 20070906
  2. SOLIRIS [Suspect]
     Dosage: 600 MG, SINGLE
     Route: 042
     Dates: start: 20070913, end: 20070913
  3. SOLIRIS [Suspect]
     Dosage: 600 MG, SINGLE
     Route: 042
     Dates: start: 20070927, end: 20070927
  4. SOLIRIS [Suspect]
     Dosage: 600 MG, SINGLE
     Route: 042
     Dates: start: 20071004, end: 20071004
  5. SOLIRIS [Suspect]
     Dosage: 600 MG, SINGLE
     Route: 042
     Dates: start: 20071011, end: 20071011
  6. SOLIRIS [Suspect]
     Dosage: 600 MG, SINGLE
     Route: 042
     Dates: start: 20071018, end: 20071018
  7. SOLIRIS [Suspect]
     Dosage: 900 MG, SINGLE
     Route: 042
     Dates: start: 20071025, end: 20071025
  8. SOLIRIS [Suspect]
     Dosage: 900 MG, SINGLE
     Route: 042
     Dates: start: 20071109, end: 20071109
  9. SOLIRIS [Suspect]
     Dosage: 900 MG, SINGLE
     Route: 042
     Dates: start: 20071122, end: 20071122
  10. SOLIRIS [Suspect]
     Dosage: 900 MG, SINGLE
     Route: 042
     Dates: start: 20071205, end: 20071205
  11. LASIX                              /00032601/ [Concomitant]
  12. POTASSIUM [Concomitant]
  13. DETROL LA /01350201/ [Concomitant]
     Dosage: 4 MG, QD
     Route: 048
     Dates: start: 20070906
  14. DAPTOMYCIN [Concomitant]
     Dosage: 300 MG, UNK
     Route: 042
  15. FERROUS SULFATE [Concomitant]
     Dosage: 325 MG, QD
     Route: 048
     Dates: start: 20070906
  16. FOLIC ACID [Concomitant]
     Dosage: 1 MG, QID
     Route: 048
     Dates: start: 20070906
  17. METOCLOPRAMIDE [Concomitant]
     Dosage: 10 MG, AC (TID) AND HS
     Route: 048
     Dates: start: 20070906
  18. PROTONIX /01263201/ [Concomitant]
     Dosage: 1 TAB, QD
     Route: 048
     Dates: start: 20070906

REACTIONS (9)
  - Hepatic failure [Fatal]
  - Gastrointestinal haemorrhage [Fatal]
  - Staphylococcal sepsis [Recovered/Resolved]
  - Ammonia increased [Unknown]
  - Transfusion [Unknown]
  - Renal failure [Unknown]
  - Device related infection [Unknown]
  - Haematocrit decreased [Unknown]
  - Fatigue [Unknown]
